FAERS Safety Report 7629264-8 (Version None)
Quarter: 2011Q3

REPORT INFORMATION
  Report Type: 
  Country: None (occurrence: None)
  Receive Date: 20110722
  Receipt Date: 20110711
  Transmission Date: 20111222
  Serious: Yes (Other)
  Sender: FDA-Public Use
  Company Number: US-PFIZER INC-2011143934

PATIENT
  Sex: Female

DRUGS (1)
  1. PRISTIQ [Suspect]
     Dosage: UNK

REACTIONS (17)
  - THINKING ABNORMAL [None]
  - IRRITABILITY [None]
  - ABNORMAL DREAMS [None]
  - TINNITUS [None]
  - DRY MOUTH [None]
  - DRUG DEPENDENCE [None]
  - HYPERHIDROSIS [None]
  - ORGASM ABNORMAL [None]
  - EJACULATION DELAYED [None]
  - PARAESTHESIA [None]
  - FATIGUE [None]
  - LIBIDO DECREASED [None]
  - LETHARGY [None]
  - CONFUSIONAL STATE [None]
  - DIZZINESS [None]
  - SOMNOLENCE [None]
  - SENSORY DISTURBANCE [None]
